FAERS Safety Report 7795430-4 (Version None)
Quarter: 2011Q4

REPORT INFORMATION
  Report Type: 
  Country: None (occurrence: None)
  Receive Date: 20111004
  Receipt Date: 20110930
  Transmission Date: 20120403
  Serious: Yes (Life-Threatening, Disabling, Other)
  Sender: FDA-Public Use
  Company Number: JP-B.I. PHARMACEUTICALS,INC./RIDGEFIELD-2011-BP-20694NB

PATIENT
  Age: 77 Year
  Sex: Male
  Weight: 58 kg

DRUGS (6)
  1. PRADAXA [Suspect]
     Indication: DEEP VEIN THROMBOSIS
     Dosage: 300 MG
     Route: 048
     Dates: start: 20110406, end: 20110619
  2. BISOPROLOL FUMARATE [Concomitant]
     Dosage: 2.5 MG
     Route: 048
     Dates: start: 20100301
  3. LASIX [Concomitant]
     Dosage: 20 MG
     Route: 048
     Dates: start: 20100301
  4. BIOFERMIN [Concomitant]
     Dosage: 3 G
     Route: 048
     Dates: start: 20100301
  5. LOPERAMIDE HCL [Concomitant]
     Route: 065
  6. AMLODIN OD [Concomitant]
     Dosage: 2.5 MG
     Route: 048
     Dates: start: 20100301

REACTIONS (6)
  - OXYGEN SATURATION DECREASED [None]
  - GASTRIC ULCER [None]
  - BLOOD PRESSURE DECREASED [None]
  - GASTROINTESTINAL HAEMORRHAGE [None]
  - MELAENA [None]
  - HAEMATEMESIS [None]
